FAERS Safety Report 9914272 (Version 1)
Quarter: 2014Q1

REPORT INFORMATION
  Report Type: Spontaneous
  Country: IT (occurrence: None)
  Receive Date: 20140218
  Receipt Date: 20140218
  Transmission Date: 20141002
  Serious: Yes (Other)
  Sender: FDA-Public Use
  Company Number: 2014AP001208

PATIENT
  Age: 85 Year
  Sex: Female

DRUGS (4)
  1. AMLODIPINE BESILATE [Suspect]
     Dates: start: 20130101, end: 20131217
  2. FUROSEMIDE (FUROSEMIDE) [Suspect]
     Dates: start: 20130101, end: 20131217
  3. RAMIPRIL (RAMIPRIL) [Suspect]
     Dates: start: 20130101, end: 20131217
  4. CARDIOASPIRIN [Concomitant]

REACTIONS (2)
  - Hypotension [None]
  - Presyncope [None]
